FAERS Safety Report 4560849-1 (Version None)
Quarter: 2005Q1

REPORT INFORMATION
  Report Type: 
  Country: None (occurrence: None)
  Receive Date: 20050126
  Receipt Date: 20041223
  Transmission Date: 20050727
  Serious: Yes (Hospitalization)
  Sender: FDA-Public Use
  Company Number: 200414815FR

PATIENT
  Age: 65 Year
  Sex: Male

DRUGS (10)
  1. ARAVA [Suspect]
     Indication: RHEUMATOID ARTHRITIS
     Route: 048
     Dates: end: 20041017
  2. VOLTAREN [Suspect]
     Route: 048
     Dates: start: 20031101, end: 20041017
  3. CORTANCYL [Concomitant]
     Route: 048
     Dates: start: 20041001, end: 20041001
  4. VASTEN [Concomitant]
     Route: 048
  5. DOLIPRANE [Concomitant]
     Dosage: DOSE: 1-1-1-1
     Route: 048
  6. REMICADE [Concomitant]
     Route: 042
     Dates: start: 20041108, end: 20041108
  7. NOVONORM [Concomitant]
     Route: 048
  8. ACTONEL [Concomitant]
     Route: 048
  9. CACIT D3 [Concomitant]
     Dosage: DOSE: 0-1-0; DOSE UNIT: UNITS
     Route: 048
  10. LANSOPRAZOLE [Concomitant]
     Dosage: DOSE: 0-0-1; DOSE UNIT: UNITS
     Route: 048

REACTIONS (16)
  - ANTINUCLEAR ANTIBODY POSITIVE [None]
  - BLOOD ALKALINE PHOSPHATASE INCREASED [None]
  - CLONUS [None]
  - FURUNCLE [None]
  - GAMMA-GLUTAMYLTRANSFERASE INCREASED [None]
  - HAEMATURIA [None]
  - HENOCH-SCHONLEIN PURPURA [None]
  - HYPOREFLEXIA [None]
  - HYPOTONIA [None]
  - LEUKOCYTOCLASTIC VASCULITIS [None]
  - LIGHT CHAIN ANALYSIS INCREASED [None]
  - MUSCULOSKELETAL STIFFNESS [None]
  - RED BLOOD CELL SEDIMENTATION RATE INCREASED [None]
  - RHEUMATOID FACTOR INCREASED [None]
  - RHEUMATOID NODULE [None]
  - SKIN LESION [None]
